FAERS Safety Report 9665062 (Version 1)
Quarter: 2013Q4

REPORT INFORMATION
  Report Type: Spontaneous
  Country: US (occurrence: US)
  Receive Date: 20131101
  Receipt Date: 20131101
  Transmission Date: 20140711
  Serious: Yes (Hospitalization, Other)
  Sender: FDA-Public Use
  Company Number: US-BAXTER-2013BAX042381

PATIENT
  Sex: Female

DRUGS (4)
  1. DIANEAL LOW CALCIUM [Suspect]
     Indication: RENAL FAILURE CHRONIC
     Route: 033
     Dates: start: 20130313
  2. DIANEAL LOW CALCIUM [Suspect]
     Route: 033
     Dates: start: 20130313
  3. DIANEAL LOW CALCIUM (ULTRABAG) [Suspect]
     Indication: RENAL FAILURE CHRONIC
     Route: 033
     Dates: start: 20130313
  4. DIANEAL LOW CALCIUM (ULTRABAG) [Suspect]
     Route: 033
     Dates: start: 20130313

REACTIONS (4)
  - Respiratory disorder [Recovering/Resolving]
  - Subcutaneous abscess [Recovering/Resolving]
  - Nervous system disorder [Recovering/Resolving]
  - Pneumonia bacterial [Recovering/Resolving]
